FAERS Safety Report 10165774 (Version 1)
Quarter: 2014Q2

REPORT INFORMATION
  Report Type: Spontaneous
  Country: US (occurrence: US)
  Receive Date: 20140510
  Receipt Date: 20140510
  Transmission Date: 20141212
  Serious: No
  Sender: FDA-Public Use
  Company Number: US-BRISTOL-MYERS SQUIBB COMPANY-19930072

PATIENT
  Age: 61 Year
  Sex: Female
  Weight: 79.36 kg

DRUGS (2)
  1. BYDUREON [Suspect]
     Indication: TYPE 2 DIABETES MELLITUS
     Dosage: 7 DOSES ?MOST RECENT INJECTION :12DEC2013.
     Route: 058
  2. VICTOZA [Concomitant]

REACTIONS (1)
  - Injection site nodule [Unknown]
